FAERS Safety Report 9928334 (Version 3)
Quarter: 2014Q1

REPORT INFORMATION
  Report Type: Spontaneous
  Country: JP (occurrence: JP)
  Receive Date: 20140227
  Receipt Date: 20140321
  Transmission Date: 20141002
  Serious: Yes (Life-Threatening)
  Sender: FDA-Public Use
  Company Number: JP-AMGEN-JPNSP2014013942

PATIENT
  Age: 92 Year
  Sex: Male

DRUGS (6)
  1. ARANESP [Suspect]
     Indication: NEPHROGENIC ANAEMIA
     Dosage: 60 MUG, UNK
     Route: 040
  2. CALBLOCK [Concomitant]
     Dosage: UNK
     Route: 048
     Dates: start: 201212
  3. URSO                               /00465701/ [Concomitant]
     Dosage: UNK
     Route: 048
     Dates: start: 201212
  4. MICARDIS [Concomitant]
     Dosage: UNK
     Route: 048
     Dates: start: 201212
  5. ALOSENN                            /00476901/ [Concomitant]
     Dosage: UNK
     Route: 048
     Dates: start: 201212
  6. CINAL [Concomitant]
     Dosage: UNK
     Route: 048

REACTIONS (1)
  - Pancytopenia [Not Recovered/Not Resolved]
